FAERS Safety Report 5355472-5 (Version None)
Quarter: 2007Q2

REPORT INFORMATION
  Report Type: 
  Country: None (occurrence: None)
  Receive Date: 20070611
  Receipt Date: 20070611
  Transmission Date: 20071010
  Serious: No
  Sender: FDA-Public Use
  Company Number: None

PATIENT
  Age: 77 Year
  Sex: Female

DRUGS (4)
  1. PROTAMINE SULFATE [Suspect]
     Indication: SURGERY
     Dosage: 50MG ONE TIME ONLY
     Dates: start: 20070521
  2. ISOFLURANE [Concomitant]
  3. PROPOFOL [Concomitant]
  4. FENTANYL [Concomitant]

REACTIONS (2)
  - BLOOD PRESSURE DECREASED [None]
  - CARDIAC ARREST [None]
